FAERS Safety Report 4437057-8 (Version None)
Quarter: 2004Q3

REPORT INFORMATION
  Report Type: 
  Country: None (occurrence: None)
  Receive Date: 20040830
  Receipt Date: 20040701
  Transmission Date: 20050211
  Serious: Yes (Death)
  Sender: FDA-Public Use
  Company Number: FR-GLAXOSMITHKLINE-B0337784A

PATIENT
  Age: 83 Year
  Sex: Male
  Weight: 50 kg

DRUGS (11)
  1. DEROXAT [Suspect]
     Indication: DEPRESSION
     Dosage: 20MG PER DAY
     Route: 048
     Dates: start: 20040611, end: 20040618
  2. PREVISCAN [Concomitant]
     Dosage: 25%DS PER DAY
     Route: 048
  3. CORDARONE [Concomitant]
     Dosage: 1TAB PER DAY
     Route: 048
  4. FENOFIBRATE [Concomitant]
     Dosage: 160MG PER DAY
     Route: 048
  5. DAFLON [Concomitant]
     Indication: VENOUS INSUFFICIENCY
     Dosage: 500MG TWICE PER DAY
     Route: 048
  6. ISOPTIN [Concomitant]
     Dosage: 120MG TWICE PER DAY
     Route: 048
  7. CORTANCYL [Concomitant]
     Dosage: 15MG PER DAY
     Route: 048
  8. ACTONEL [Concomitant]
     Indication: OSTEOPOROSIS
     Dosage: 35MG WEEKLY
     Route: 048
  9. PYOSTACINE [Concomitant]
     Indication: SKIN INFECTION
     Dosage: 500MG THREE TIMES PER DAY
     Route: 048
  10. POTASSIUM [Concomitant]
     Route: 048
  11. DOLIPRANE [Concomitant]
     Indication: PAIN
     Dosage: 500TAB THREE TIMES PER DAY
     Route: 048

REACTIONS (3)
  - DIPLOPIA [None]
  - HYPONATRAEMIA [None]
  - IIIRD NERVE PARALYSIS [None]
